FAERS Safety Report 25595015 (Version 1)
Quarter: 2025Q3

REPORT INFORMATION
  Report Type: Report from Study
  Country: CA (occurrence: CA)
  Receive Date: 20250723
  Receipt Date: 20250723
  Transmission Date: 20251020
  Serious: Yes (Other)
  Sender: Haleon PLC
  Company Number: CA-002147023-NVSC2024CA070298

PATIENT
  Age: 29 Year
  Sex: Female

DRUGS (5)
  1. DICLOFENAC DIETHYLAMINE [Suspect]
     Active Substance: DICLOFENAC DIETHYLAMINE
     Indication: Product used for unknown indication
  2. ADVIL [Suspect]
     Active Substance: IBUPROFEN
     Indication: Product used for unknown indication
  3. CELEBREX [Suspect]
     Active Substance: CELECOXIB
     Indication: Product used for unknown indication
  4. MELOXICAM [Suspect]
     Active Substance: MELOXICAM
     Indication: Product used for unknown indication
  5. NAPROXEN [Suspect]
     Active Substance: NAPROXEN
     Indication: Product used for unknown indication

REACTIONS (9)
  - Peripheral swelling [Unknown]
  - Pigmentation disorder [Unknown]
  - Drug ineffective [Unknown]
  - Hypersensitivity [Unknown]
  - Gastric ulcer [Unknown]
  - Injection site pain [Unknown]
  - Mood swings [Unknown]
  - Abdominal discomfort [Unknown]
  - Pain [Unknown]
